FAERS Safety Report 5256230-2 (Version None)
Quarter: 2007Q1

REPORT INFORMATION
  Report Type: 
  Country: None (occurrence: None)
  Receive Date: 20070302
  Receipt Date: 20070302
  Transmission Date: 20070707
  Serious: Yes (Death, Congenital Anomaly, Other)
  Sender: FDA-Public Use
  Company Number: None

PATIENT
  Age: 46 Year
  Sex: Female
  Weight: 49.0338 kg

DRUGS (3)
  1. CYMBALTA [Suspect]
     Indication: AFFECTIVE DISORDER
     Dosage: 1 IN PM PO
     Route: 048
     Dates: start: 20060801, end: 20061101
  2. CYMBALTA [Suspect]
     Indication: PAIN
     Dosage: 1 IN PM PO
     Route: 048
     Dates: start: 20060801, end: 20061101
  3. PROVIGIL [Suspect]
     Indication: NARCOLEPSY
     Dosage: 200MGS 1 IN AM PO
     Route: 048
     Dates: start: 20060401, end: 20070228

REACTIONS (5)
  - MOUTH ULCERATION [None]
  - NASAL ULCER [None]
  - PRURITUS [None]
  - SKIN ULCER [None]
  - TONGUE ULCERATION [None]
